FAERS Safety Report 5858128-5 (Version None)
Quarter: 2008Q3

REPORT INFORMATION
  Report Type: 
  Country: None (occurrence: None)
  Receive Date: 20080818
  Receipt Date: 20080527
  Transmission Date: 20090109
  Serious: No
  Sender: FDA-Public Use
  Company Number: TPA2008A00780

PATIENT
  Age: 70 Year
  Sex: Male
  Weight: 79.3 kg

DRUGS (5)
  1. ROZEREM [Suspect]
     Indication: DRUG USE FOR UNKNOWN INDICATION
     Dosage: PER ORAL
     Route: 048
  2. PULMICORT [Concomitant]
  3. SEREVENT (SALMETEROL XINAOATE) [Concomitant]
  4. CHEMOTHERAPEUTICS NOS (OTHER CHEMOTHERAPEUTICS) [Concomitant]
  5. LUNESTA [Concomitant]

REACTIONS (1)
  - DRUG INEFFECTIVE [None]
